FAERS Safety Report 9380749 (Version 1)
Quarter: 2013Q3

REPORT INFORMATION
  Report Type: Spontaneous
  Country: US (occurrence: US)
  Receive Date: 20130702
  Receipt Date: 20130702
  Transmission Date: 20140515
  Serious: No
  Sender: FDA-Public Use
  Company Number: US-PFIZER INC-2013196702

PATIENT
  Age: 27 Year
  Sex: Female
  Weight: 141 kg

DRUGS (5)
  1. ZOLOFT [Suspect]
     Indication: DEPRESSION
     Dosage: UNK
  2. EFFEXOR [Suspect]
     Indication: DEPRESSION
     Dosage: UNK
  3. WELLBUTRIN [Suspect]
     Indication: DEPRESSION
     Dosage: UNK
  4. CELEXA [Suspect]
     Indication: DEPRESSION
     Dosage: UNK
  5. PAXIL [Suspect]
     Indication: DEPRESSION
     Dosage: UNK

REACTIONS (1)
  - Drug ineffective [Unknown]
